FAERS Safety Report 24457515 (Version 1)
Quarter: 2024Q4

REPORT INFORMATION
  Report Type: Spontaneous
  Country: CN (occurrence: CN)
  Receive Date: 20241018
  Receipt Date: 20241018
  Transmission Date: 20250115
  Serious: No
  Sender: ROCHE
  Company Number: CN-BoehringerIngelheim-2023-BI-260986

PATIENT
  Age: 52 Year
  Sex: Female
  Weight: 59.0 kg

DRUGS (3)
  1. ALTEPLASE [Suspect]
     Active Substance: ALTEPLASE
     Indication: Thrombolysis
     Route: 042
     Dates: start: 20230912, end: 20230912
  2. ALTEPLASE [Suspect]
     Active Substance: ALTEPLASE
     Route: 042
     Dates: start: 20230912, end: 20230912
  3. SODIUM CHLORIDE [Concomitant]
     Active Substance: SODIUM CHLORIDE
     Indication: Drug therapy
     Route: 042
     Dates: start: 20230912, end: 20230912

REACTIONS (2)
  - Lip pruritus [Recovered/Resolved]
  - Cheilitis [Recovered/Resolved]

NARRATIVE: CASE EVENT DATE: 20230912
